FAERS Safety Report 8861948 (Version 2)
Quarter: 2012Q4

REPORT INFORMATION
  Report Type: Report from Study
  Country: US (occurrence: US)
  Receive Date: 20121025
  Receipt Date: 20121225
  Transmission Date: 20130627
  Serious: Yes (Other)
  Sender: FDA-Public Use
  Company Number: US-BRISTOL-MYERS SQUIBB COMPANY-16914947

PATIENT
  Age: 56 Year
  Sex: Male
  Weight: 131.7 kg

DRUGS (6)
  1. IPILIMUMAB [Suspect]
     Indication: MALIGNANT MELANOMA
     Dosage: Courses:5
     Route: 042
     Dates: start: 20120702, end: 20120814
  2. ALLOPURINOL [Suspect]
     Dosage: 14Aug12-20Aug12:100mg
20Aug12-ong:300mg
     Dates: start: 20120814
  3. FLORASTOR [Suspect]
     Dosage: 1DF: 1 tab
     Dates: start: 20120814
  4. VANCOMYCIN [Suspect]
     Dates: start: 20120814, end: 20120824
  5. COLCHICINE [Suspect]
     Dosage: QS 17Aug12-20Aug12
TID/PRN 20Aug12-29Aug12
     Dates: start: 20120817, end: 20120829
  6. LEVOTHYROXINE [Concomitant]

REACTIONS (3)
  - Rash maculo-papular [Recovered/Resolved]
  - Arthritis [Not Recovered/Not Resolved]
  - Gout [Not Recovered/Not Resolved]
